FAERS Safety Report 4359854-X (Version None)
Quarter: 2004Q2

REPORT INFORMATION
  Report Type: 
  Country: None (occurrence: None)
  Receive Date: 20040517
  Receipt Date: 20040429
  Transmission Date: 20050107
  Serious: Yes (Hospitalization)
  Sender: FDA-Public Use
  Company Number: 2004AP00254

PATIENT
  Age: 85 Year
  Sex: Female

DRUGS (4)
  1. MEROPEN [Suspect]
     Dosage: 0.5 G BID IVD
     Route: 042
     Dates: start: 20031017, end: 20031020
  2. FLUMARIN [Concomitant]
  3. GLOBENIN [Concomitant]
  4. MIRACLID [Concomitant]

REACTIONS (3)
  - CARDIAC FAILURE [None]
  - DISSEMINATED INTRAVASCULAR COAGULATION [None]
  - PNEUMONIA [None]
